FAERS Safety Report 10272351 (Version 1)
Quarter: 2014Q3

REPORT INFORMATION
  Report Type: Spontaneous
  Country: US (occurrence: US)
  Receive Date: 20140702
  Receipt Date: 20140702
  Transmission Date: 20150326
  Serious: Yes (Other)
  Sender: FDA-Public Use
  Company Number: US-UCBSA-2014003682

PATIENT
  Sex: Female

DRUGS (1)
  1. KEPPRA XR [Suspect]
     Active Substance: LEVETIRACETAM
     Indication: CONVULSION
     Dosage: 500 MG, 2X/DAY (BID)

REACTIONS (3)
  - Aphasia [Unknown]
  - Inappropriate schedule of drug administration [Unknown]
  - Cerebrovascular accident [Unknown]
